FAERS Safety Report 18822697 (Version 1)
Quarter: 2021Q1

REPORT INFORMATION
  Report Type: Other
  Country: US (occurrence: US)
  Receive Date: 20210202
  Receipt Date: 20210202
  Transmission Date: 20210419
  Serious: Yes (Other)
  Sender: FDA-Public Use
  Company Number: US-ROCHE-2759035

PATIENT

DRUGS (6)
  1. VINORELBINE [Suspect]
     Active Substance: VINORELBINE TARTRATE
     Indication: BREAST CANCER
     Route: 065
  2. GEMCITABINE. [Suspect]
     Active Substance: GEMCITABINE
     Indication: BREAST CANCER
     Route: 065
  3. MARGETUXIMAB. [Suspect]
     Active Substance: MARGETUXIMAB
     Indication: BREAST CANCER
     Route: 065
  4. ERIBULIN [Suspect]
     Active Substance: ERIBULIN
     Indication: BREAST CANCER
     Route: 065
  5. TRASTUZUMAB. [Suspect]
     Active Substance: TRASTUZUMAB
     Indication: BREAST CANCER
     Route: 065
  6. CAPECITABINE. [Suspect]
     Active Substance: CAPECITABINE
     Indication: BREAST CANCER
     Route: 048

REACTIONS (31)
  - Neutrophil count decreased [Unknown]
  - Febrile neutropenia [Unknown]
  - Cough [Unknown]
  - Aspartate aminotransferase increased [Unknown]
  - Fatigue [Unknown]
  - Hypokalaemia [Unknown]
  - Hypertension [Unknown]
  - Alanine aminotransferase increased [Unknown]
  - White blood cell count decreased [Unknown]
  - Leukopenia [Unknown]
  - Constipation [Unknown]
  - Pyrexia [Unknown]
  - Palmar-plantar erythrodysaesthesia syndrome [Unknown]
  - Dyspnoea [Unknown]
  - Abdominal pain [Unknown]
  - Pleural effusion [Unknown]
  - Syncope [Unknown]
  - Neuropathy peripheral [Unknown]
  - Nausea [Unknown]
  - Vomiting [Unknown]
  - Infusion related reaction [Unknown]
  - Pain in extremity [Unknown]
  - Stomatitis [Unknown]
  - Urinary tract infection [Unknown]
  - Neutropenia [Unknown]
  - Asthenia [Unknown]
  - Decreased appetite [Unknown]
  - Pneumonia [Unknown]
  - Diarrhoea [Unknown]
  - Dizziness [Unknown]
  - Anaemia [Unknown]
